FAERS Safety Report 4597662-5 (Version None)
Quarter: 2005Q1

REPORT INFORMATION
  Report Type: 
  Country: None (occurrence: None)
  Receive Date: 20050303
  Receipt Date: 20050225
  Transmission Date: 20050727
  Serious: Yes (Hospitalization)
  Sender: FDA-Public Use
  Company Number: JP-GLAXOSMITHKLINE-B0373040A

PATIENT
  Age: 64 Year
  Sex: Female

DRUGS (1)
  1. ZEFIX [Suspect]
     Indication: DRUG USE FOR UNKNOWN INDICATION
     Dosage: 100MG PER DAY
     Route: 048
     Dates: start: 20050104, end: 20050222

REACTIONS (1)
  - HEPATIC FUNCTION ABNORMAL [None]
